FAERS Safety Report 21187435 (Version 4)
Quarter: 2023Q2

REPORT INFORMATION
  Report Type: Report from Study
  Country: US (occurrence: US)
  Receive Date: 20220808
  Receipt Date: 20230609
  Transmission Date: 20230721
  Serious: Yes (Hospitalization)
  Sender: FDA-Public Use
  Company Number: US-NOVARTISTESTPH-NVSC2022US178647

PATIENT
  Sex: Male

DRUGS (3)
  1. COSENTYX [Suspect]
     Active Substance: SECUKINUMAB
     Indication: Psoriasis
     Dosage: 150 MG, QMO
     Route: 058
  2. COSENTYX [Suspect]
     Active Substance: SECUKINUMAB
     Indication: Psoriatic arthropathy
     Dosage: 150 MG, QMO
     Route: 058
  3. NUCALA [Concomitant]
     Active Substance: MEPOLIZUMAB
     Indication: Lung disorder
     Dosage: UNK
     Route: 065

REACTIONS (11)
  - Skin exfoliation [Unknown]
  - Pruritus [Unknown]
  - Pulmonary embolism [Unknown]
  - Heart rate increased [Unknown]
  - Dyspnoea [Unknown]
  - Sinusitis [Unknown]
  - Arthralgia [Unknown]
  - Asthma [Unknown]
  - COVID-19 [Unknown]
  - Brain fog [Unknown]
  - Pain [Unknown]
